FAERS Safety Report 6150988-6 (Version None)
Quarter: 2009Q2

REPORT INFORMATION
  Report Type: 
  Country: None (occurrence: None)
  Receive Date: 20090410
  Receipt Date: 20090112
  Transmission Date: 20091009
  Serious: No
  Sender: FDA-Public Use
  Company Number: A0763030A

PATIENT
  Sex: Female

DRUGS (1)
  1. TYKERB [Suspect]
     Indication: BREAST CANCER
     Dosage: 5TAB FIVE TIMES PER DAY
     Route: 048

REACTIONS (1)
  - SINUSITIS [None]
